FAERS Safety Report 6183674-7 (Version None)
Quarter: 2009Q2

REPORT INFORMATION
  Report Type: 
  Country: None (occurrence: None)
  Receive Date: 20090506
  Receipt Date: 20090421
  Transmission Date: 20091009
  Serious: Yes (Hospitalization)
  Sender: FDA-Public Use
  Company Number: 2009201383

PATIENT
  Age: 65 Year
  Sex: Female

DRUGS (7)
  1. DALTEPARIN SODIUM [Suspect]
     Indication: LUNG NEOPLASM MALIGNANT
     Dates: start: 20090224
  2. CARBOPLATIN [Suspect]
     Dosage: INTRAVENOUS
     Route: 042
     Dates: start: 20090224
  3. ETOPOSIDE (ETOPOSIDE) SOLUTION FOR INFUSION [Suspect]
     Dosage: INTRAVENOUS, ORAL
     Route: 042
     Dates: start: 20090224
  4. ETOPOSIDE (ETOPOSIDE) SOLUTION FOR INFUSION [Suspect]
     Dosage: INTRAVENOUS, ORAL
     Route: 042
     Dates: start: 20090224
  5. METFORMIN HCL [Concomitant]
  6. SIMVASTATIN [Concomitant]
  7. ASPIRIN [Concomitant]

REACTIONS (2)
  - NEUTROPENIC SEPSIS [None]
  - THROMBOCYTOPENIA [None]
